FAERS Safety Report 8962833 (Version 3)
Quarter: 2015Q1

REPORT INFORMATION
  Report Type: Spontaneous
  Country: US (occurrence: US)
  Receive Date: 20121213
  Receipt Date: 20150326
  Transmission Date: 20150721
  Serious: Yes (Hospitalization)
  Sender: FDA-Public Use
  Company Number: US-BAYER-2012-129816

PATIENT
  Age: 32 Year
  Sex: Female
  Weight: 132.79 kg

DRUGS (14)
  1. YASMIN [Suspect]
     Active Substance: DROSPIRENONE\ETHINYL ESTRADIOL
     Indication: PREMENSTRUAL SYNDROME
  2. YASMIN [Suspect]
     Active Substance: DROSPIRENONE\ETHINYL ESTRADIOL
     Indication: ACNE
     Dosage: UNK
     Dates: start: 200610, end: 201108
  3. MIDOL PMS [Concomitant]
     Indication: PREMENSTRUAL SYNDROME
     Dosage: UNK
     Dates: start: 2011
  4. YASMIN [Suspect]
     Active Substance: DROSPIRENONE\ETHINYL ESTRADIOL
     Indication: PREMENSTRUAL DYSPHORIC DISORDER
  5. ZOLOFT [Concomitant]
     Active Substance: SERTRALINE HYDROCHLORIDE
     Indication: DEPRESSION
     Dosage: 50 TO 100 MG EVERY DAY
     Route: 048
  6. TYLENOL [Concomitant]
     Active Substance: ACETAMINOPHEN
     Indication: PAIN
     Dosage: UNK
     Dates: start: 2011
  7. MIDOL PMS [Concomitant]
     Indication: PREMENSTRUAL DYSPHORIC DISORDER
  8. NORCO [Concomitant]
     Active Substance: ACETAMINOPHEN\HYDROCODONE BITARTRATE
     Dosage: 5-325MG DAILY TO TWICE DAILY PRN
     Route: 048
  9. EXCEDRIN MIGRAINE [Concomitant]
     Active Substance: ACETAMINOPHEN\ASPIRIN\CAFFEINE
     Indication: MIGRAINE
     Dosage: UNK
     Dates: start: 2011
  10. YASMIN [Suspect]
     Active Substance: DROSPIRENONE\ETHINYL ESTRADIOL
     Indication: DYSMENORRHOEA
  11. LYRICA [Concomitant]
     Active Substance: PREGABALIN
     Dosage: 75 MG, 2-3 TABS EVERY NIGHT
     Route: 048
  12. SOMA [Concomitant]
     Active Substance: CARISOPRODOL
     Dosage: 350MG Q PM (INTERPRETED AS EVERY EVENING)
     Route: 048
  13. IBUPROFEN. [Concomitant]
     Active Substance: IBUPROFEN
     Dosage: 200 MG, PRN
     Route: 048
  14. MILNACIPRAN [Concomitant]
     Active Substance: MILNACIPRAN
     Dosage: 25 MG, ? TAB DAILY [TIMES]
     Route: 048

REACTIONS (9)
  - General physical health deterioration [Recovered/Resolved]
  - Deep vein thrombosis [None]
  - Abdominal pain [None]
  - Pain [Recovered/Resolved]
  - Pain [None]
  - Pulmonary embolism [Recovered/Resolved]
  - Anxiety [None]
  - Injury [Recovered/Resolved]
  - Emotional distress [None]

NARRATIVE: CASE EVENT DATE: 20110803
